FAERS Safety Report 10146306 (Version 2)
Quarter: 2014Q2

REPORT INFORMATION
  Report Type: Spontaneous
  Country: FR (occurrence: FR)
  Receive Date: 20140501
  Receipt Date: 20140501
  Transmission Date: 20141212
  Serious: Yes (Hospitalization)
  Sender: FDA-Public Use
  Company Number: FR-009507513-0904USA01503

PATIENT
  Age: 82 Year
  Sex: Female

DRUGS (6)
  1. MODURETIC [Suspect]
     Indication: HYPERTENSION
     Route: 048
     Dates: end: 20090216
  2. TENSTATEN [Interacting]
     Indication: HYPERTENSION
     Route: 048
     Dates: end: 20090216
  3. LOPERAMID [Interacting]
     Dosage: UNK
     Route: 048
     Dates: end: 200903
  4. ZALDIAR [Interacting]
     Indication: PAIN
     Route: 048
     Dates: end: 20090216
  5. TAREG [Suspect]
     Indication: HYPERTENSION
     Dosage: 40 MG, QD
     Route: 048
  6. CALSYN [Concomitant]
     Dosage: UNK
     Route: 048
     Dates: end: 200903

REACTIONS (3)
  - Spinal fracture [Recovered/Resolved]
  - Pelvic fracture [Recovered/Resolved]
  - Fall [Recovering/Resolving]
